FAERS Safety Report 4880793-X (Version None)
Quarter: 2006Q1

REPORT INFORMATION
  Report Type: 
  Country: None (occurrence: None)
  Receive Date: 20060111
  Receipt Date: 20050309
  Transmission Date: 20060701
  Serious: Yes (Death, Other)
  Sender: FDA-Public Use
  Company Number: 2005S1000042

PATIENT
  Age: 77 Year
  Weight: 75 kg

DRUGS (2)
  1. CUBICIN [Suspect]
     Indication: STAPHYLOCOCCAL BACTERAEMIA
     Dosage: 6 MG/KG;Q24H;IV
     Route: 042
     Dates: start: 20041201, end: 20050316
  2. VANCOMYCIN [Concomitant]

REACTIONS (5)
  - ABSCESS [None]
  - COAGULOPATHY [None]
  - ENDOCARDITIS [None]
  - SEPTIC EMBOLUS [None]
  - STAPHYLOCOCCAL BACTERAEMIA [None]
